FAERS Safety Report 9981703 (Version 1)
Quarter: 2014Q1

REPORT INFORMATION
  Report Type: Report from Study
  Country: US (occurrence: US)
  Receive Date: 20140307
  Receipt Date: 20140307
  Transmission Date: 20141002
  Serious: No
  Sender: FDA-Public Use
  Company Number: US-ABBVIE-13P-163-1181958-00

PATIENT
  Age: 61 Year
  Sex: Female

DRUGS (11)
  1. HUMIRA [Suspect]
     Indication: COLITIS ULCERATIVE
     Dates: start: 20131017, end: 20131017
  2. HUMIRA [Suspect]
     Dates: start: 20131031, end: 20131031
  3. HUMIRA [Suspect]
  4. IMURAN [Concomitant]
     Indication: COLITIS ULCERATIVE
  5. IRON [Concomitant]
     Indication: IRON DEFICIENCY
     Dosage: INFUSION EVERY 3 MONTHS
     Route: 042
  6. IRON [Concomitant]
     Indication: COLITIS ULCERATIVE
  7. ASA [Concomitant]
     Indication: PRODUCT USED FOR UNKNOWN INDICATION
  8. AMLODIPINE BESYLATE [Concomitant]
     Indication: HYPERTENSION
  9. ATROPINE W/DIPHENOXYLATE [Concomitant]
     Indication: DIARRHOEA
     Dosage: 2 QID
  10. ATENOLOL [Concomitant]
     Indication: HYPERTENSION
  11. OMEPRAZOLE [Concomitant]
     Indication: GASTROOESOPHAGEAL REFLUX DISEASE
     Dosage: AT BEDTIME

REACTIONS (3)
  - Faeces discoloured [Recovering/Resolving]
  - Weight increased [Unknown]
  - Oedema peripheral [Unknown]
